FAERS Safety Report 8765448 (Version 1)
Quarter: 2012Q4

REPORT INFORMATION
  Report Type: 
  Country: ZA (occurrence: ZA)
  Receive Date: 20120903
  Receipt Date: 20120903
  Transmission Date: 20130627
  Serious: Yes (Other)
  Sender: FDA-Public Use
  Company Number: ZA-AMGEN-ZAFSP2012054711

PATIENT
  Age: 50 Year
  Sex: Male
  Weight: 128 kg

DRUGS (6)
  1. SENSIPAR [Suspect]
     Indication: HYPERPARATHYROIDISM SECONDARY
     Dosage: 30 mg, qd
     Route: 048
     Dates: start: 20120813, end: 20120821
  2. NORVASC [Concomitant]
     Dosage: 10 mg, qd
     Route: 048
  3. LASIX                              /00032601/ [Concomitant]
     Dosage: 500 mg, qd
     Route: 048
  4. MIRCERA [Concomitant]
     Dosage: 250 mg, qmo
     Route: 058
  5. B-CAL [Concomitant]
     Dosage: UNK
  6. VENOFER [Concomitant]
     Dosage: 200 mg, qwk
     Route: 042

REACTIONS (3)
  - Dyspnoea [Recovering/Resolving]
  - Blood pressure decreased [Recovering/Resolving]
  - Blood glucose decreased [Recovering/Resolving]
